FAERS Safety Report 16325453 (Version 1)
Quarter: 2019Q2

REPORT INFORMATION
  Report Type: Spontaneous
  Country: US (occurrence: US)
  Receive Date: 20190517
  Receipt Date: 20190517
  Transmission Date: 20190711
  Serious: Yes (Other)
  Sender: FDA-Public Use
  Company Number: US-BAYER-2019-096756

PATIENT
  Age: 52 Year
  Sex: Male

DRUGS (6)
  1. MULTIVITAMINS [VITAMINS NOS] [Concomitant]
     Active Substance: VITAMINS
  2. COLECALCIFEROL [Concomitant]
     Active Substance: CHOLECALCIFEROL
  3. IBUPROFEN. [Concomitant]
     Active Substance: IBUPROFEN
  4. BETASERON [Suspect]
     Active Substance: INTERFERON BETA-1B
     Indication: MULTIPLE SCLEROSIS
     Dosage: 0.25 MG, QOD
     Route: 058
     Dates: start: 20131022
  5. FLUZONE [INFLUENZA VACCINE] [Concomitant]
     Dosage: UNK
     Dates: start: 2017
  6. FLUZONE [INFLUENZA VACCINE] [Concomitant]
     Dosage: UNK
     Dates: start: 2018

REACTIONS (3)
  - Multiple sclerosis relapse [Not Recovered/Not Resolved]
  - Hypoaesthesia [Not Recovered/Not Resolved]
  - Pyrexia [Not Recovered/Not Resolved]

NARRATIVE: CASE EVENT DATE: 201905
